FAERS Safety Report 21392497 (Version 3)
Quarter: 2023Q4

REPORT INFORMATION
  Report Type: Report from Study
  Country: US (occurrence: US)
  Receive Date: 20220929
  Receipt Date: 20231024
  Transmission Date: 20240110
  Serious: No
  Sender: FDA-Public Use
  Company Number: US-IDORSIA-001314-2022-US

PATIENT
  Age: 74 Year
  Sex: Male

DRUGS (4)
  1. QUVIVIQ [Suspect]
     Active Substance: DARIDOREXANT
     Indication: Insomnia
     Dosage: 50 MG, QD
     Route: 048
     Dates: start: 20220805
  2. MELATONIN [Concomitant]
     Active Substance: MELATONIN
     Dosage: 10 MG
  3. TRAZODONE HCL [Concomitant]
     Active Substance: TRAZODONE HYDROCHLORIDE
  4. HERBALS\MELISSA OFFICINALIS [Concomitant]
     Active Substance: HERBALS\MELISSA OFFICINALIS

REACTIONS (5)
  - Hepatic pain [Unknown]
  - Pain [Unknown]
  - Wrong technique in product usage process [Unknown]
  - Drug ineffective [Unknown]
  - Somnolence [Unknown]

NARRATIVE: CASE EVENT DATE: 20220815
